FAERS Safety Report 25614146 (Version 1)
Quarter: 2025Q3

REPORT INFORMATION
  Report Type: Report from Study
  Country: US (occurrence: US)
  Receive Date: 20250728
  Receipt Date: 20250728
  Transmission Date: 20251020
  Serious: Yes (Other)
  Sender: MALLINCKRODT
  Company Number: US-MALLINCKRODT-MNK202504402

PATIENT
  Age: 54 Year
  Sex: Female

DRUGS (1)
  1. CORTICOTROPIN [Suspect]
     Active Substance: CORTICOTROPIN
     Indication: Relapsing-remitting multiple sclerosis
     Dates: start: 201205

REACTIONS (4)
  - Multiple sclerosis relapse [Unknown]
  - Loss of consciousness [Unknown]
  - Seizure [Unknown]
  - Injection site pain [Unknown]
